FAERS Safety Report 9113273 (Version 2)
Quarter: 2013Q1

REPORT INFORMATION
  Report Type: Spontaneous
  Country: CA (occurrence: US)
  Receive Date: 20130211
  Receipt Date: 20130326
  Transmission Date: 20140127
  Serious: No
  Sender: FDA-Public Use
  Company Number: CA-009507513-1302USA000093

PATIENT
  Age: 57 Year
  Sex: Male

DRUGS (2)
  1. VICTRELIS [Suspect]
     Indication: HEPATITIS C
     Dosage: UNK, TID
     Route: 048
     Dates: end: 20120702
  2. PEGETRON [Concomitant]
     Indication: HEPATITIS C

REACTIONS (2)
  - Rash [Recovered/Resolved with Sequelae]
  - Pruritus [Recovered/Resolved]
